FAERS Safety Report 9636103 (Version 2)
Quarter: 2014Q1

REPORT INFORMATION
  Report Type: Report from Study
  Country: SE (occurrence: SE)
  Receive Date: 20131021
  Receipt Date: 20140218
  Transmission Date: 20141002
  Serious: Yes (Other)
  Sender: FDA-Public Use
  Company Number: SE-AMGEN-SWECT2013073440

PATIENT
  Age: 48 Year
  Sex: Female

DRUGS (1)
  1. ETANERCEPT [Suspect]
     Indication: PSORIATIC ARTHROPATHY
     Dosage: 50 MG, UNK
     Route: 065
     Dates: start: 20130506, end: 20130806

REACTIONS (1)
  - Hypotension [Recovered/Resolved]
